FAERS Safety Report 7546004-1 (Version None)
Quarter: 2011Q2

REPORT INFORMATION
  Report Type: 
  Country: None (occurrence: None)
  Receive Date: 20110614
  Receipt Date: 20110601
  Transmission Date: 20111010
  Serious: Yes (Hospitalization, Other)
  Sender: FDA-Public Use
  Company Number: PHBS2007BR08630

PATIENT
  Age: 88 Year
  Sex: Male
  Weight: 66 kg

DRUGS (8)
  1. VITALUX PLUS [Suspect]
     Indication: MACULAR DEGENERATION
     Dosage: 1 DF DAILY
     Route: 048
     Dates: start: 20070401
  2. EXFORGE [Suspect]
     Indication: HYPERTENSION
     Dosage: 1 DF DAILY
     Route: 048
     Dates: start: 20050101
  3. OMEPRAZOLE [Concomitant]
     Indication: GASTRITIS
     Dosage: 2 DF DAILY
     Route: 048
  4. EXFORGE [Suspect]
     Indication: BLOOD PRESSURE INADEQUATELY CONTROLLED
  5. LEVOTHYROXINE SODIUM [Concomitant]
     Indication: THYROID DISORDER
     Dosage: 1 DF/DAY
     Route: 048
  6. EXFORGE [Suspect]
     Indication: HYPERTENSION
     Dosage: 1 DF/DAY
     Route: 048
  7. SIMVASTATIN [Concomitant]
     Indication: BLOOD CHOLESTEROL
     Dosage: 1 DF/DAY
     Route: 048
  8. LORAX [Concomitant]
     Indication: SLEEP DISORDER
     Dosage: 1 DF/DAY
     Route: 048
     Dates: start: 20061201

REACTIONS (21)
  - MACULAR DEGENERATION [None]
  - OCCULT BLOOD [None]
  - RETCHING [None]
  - INSOMNIA [None]
  - INFLUENZA [None]
  - DEPRESSION [None]
  - DECREASED APPETITE [None]
  - THYROID DISORDER [None]
  - HAEMOGLOBIN DECREASED [None]
  - FAECES DISCOLOURED [None]
  - WEIGHT DECREASED [None]
  - ANORECTAL DISCOMFORT [None]
  - PROCTALGIA [None]
  - NAUSEA [None]
  - FEELING ABNORMAL [None]
  - NASOPHARYNGITIS [None]
  - GASTROINTESTINAL DISORDER [None]
  - SEMINAL VESICULAR CALCULUS [None]
  - ANAEMIA [None]
  - WOUND HAEMORRHAGE [None]
  - FEELING HOT [None]
